FAERS Safety Report 23687910 (Version 2)
Quarter: 2024Q2

REPORT INFORMATION
  Report Type: Spontaneous
  Country: KR (occurrence: None)
  Receive Date: 20240329
  Receipt Date: 20240404
  Transmission Date: 20240716
  Serious: Yes (Hospitalization, Other)
  Sender: FDA-Public Use
  Company Number: 2024A073960

PATIENT
  Age: 35 Year
  Sex: Male
  Weight: 120 kg

DRUGS (4)
  1. QUETIAPINE [Suspect]
     Active Substance: QUETIAPINE
     Indication: Schizophrenia
     Route: 048
  2. PALIPERIDONE [Suspect]
     Active Substance: PALIPERIDONE
     Indication: Schizophrenia
  3. LITHIUM [Concomitant]
     Active Substance: LITHIUM
     Indication: Schizophrenia
  4. LORAZEPAM [Concomitant]
     Active Substance: LORAZEPAM
     Indication: Schizophrenia

REACTIONS (3)
  - Overdose [Unknown]
  - Diabetic ketoacidosis [Recovered/Resolved]
  - Pulmonary embolism [Unknown]
